FAERS Safety Report 6490154-8 (Version None)
Quarter: 2009Q4

REPORT INFORMATION
  Report Type: 
  Country: None (occurrence: None)
  Receive Date: 20091211
  Receipt Date: 20090804
  Transmission Date: 20100525
  Serious: No
  Sender: FDA-Public Use
  Company Number: A0800422A

PATIENT
  Age: 66 Year
  Sex: Male

DRUGS (9)
  1. FLONASE [Suspect]
     Dosage: 2SPR PER DAY
     Route: 045
     Dates: start: 20070801, end: 20090803
  2. TRICOR [Concomitant]
  3. SIMVASTATIN [Concomitant]
  4. AMLODIPINE [Concomitant]
  5. DYAZIDE [Concomitant]
  6. BENAZAPRIL [Concomitant]
  7. ACYCLOVIR [Concomitant]
  8. LOVAZA [Concomitant]
  9. NIACIN [Concomitant]

REACTIONS (5)
  - HEADACHE [None]
  - INTRAOCULAR PRESSURE INCREASED [None]
  - INTRAOCULAR PRESSURE TEST ABNORMAL [None]
  - LENS DISLOCATION [None]
  - OPEN WOUND [None]
